FAERS Safety Report 20952820 (Version 1)
Quarter: 2022Q2

REPORT INFORMATION
  Report Type: Spontaneous
  Country: US (occurrence: None)
  Receive Date: 20220613
  Receipt Date: 20220613
  Transmission Date: 20220721
  Serious: Yes (Other)
  Sender: FDA-Public Use
  Company Number: None

PATIENT
  Age: 19 Year
  Sex: Female
  Weight: 162 kg

DRUGS (3)
  1. OFLOXACIN OTIC [Suspect]
     Active Substance: OFLOXACIN
     Indication: Ear infection
     Dosage: OTHER QUANTITY : 10 DROP(S);?FREQUENCY : DAILY;?
     Route: 001
     Dates: start: 20220612, end: 20220612
  2. FLUOXETINE [Concomitant]
     Active Substance: FLUOXETINE HYDROCHLORIDE
  3. PRAZOSIN [Concomitant]
     Active Substance: PRAZOSIN

REACTIONS (7)
  - Eye swelling [None]
  - Swelling face [None]
  - Ear swelling [None]
  - Swelling face [None]
  - Urticaria [None]
  - Pruritus [None]
  - Throat irritation [None]

NARRATIVE: CASE EVENT DATE: 20220612
